FAERS Safety Report 10537736 (Version 1)
Quarter: 2014Q4

REPORT INFORMATION
  Report Type: Spontaneous
  Country: IT (occurrence: None)
  Receive Date: 20141021
  Receipt Date: 20141021
  Transmission Date: 20150529
  Serious: Yes (Other)
  Sender: FDA-Public Use
  Company Number: FK201404188

PATIENT
  Age: 65 Year
  Sex: Female
  Weight: 68 kg

DRUGS (7)
  1. CARBOPLATIN. [Suspect]
     Active Substance: CARBOPLATIN
     Indication: OVARIAN CANCER
     Dosage: CYCLICAL, NOT OTHERWISE SPECIFIED
     Route: 042
     Dates: start: 20140423, end: 20140826
  2. OMEPRAZOLE (OMEPRAZOLE) [Concomitant]
     Active Substance: OMEPRAZOLE
  3. LASIX [Concomitant]
     Active Substance: FUROSEMIDE
  4. ALDACTONE [Concomitant]
     Active Substance: SPIRONOLACTONE
  5. PACLITAXEL. [Suspect]
     Active Substance: PACLITAXEL
     Indication: OVARIAN CANCER
     Dosage: CYCLICAL, NOT OTHERWISE SPECIFIED
     Route: 042
     Dates: start: 20140424, end: 20140826
  6. ISOPTIN (VERAPAMIL HYDROCHLORIDE) [Concomitant]
  7. AVASTIN [Suspect]
     Active Substance: BEVACIZUMAB
     Indication: OVARIAN CANCER
     Dosage: CYCLICAL, NOT OTHERWISE SPECIFIED
     Route: 042
     Dates: start: 20140423, end: 20140826

REACTIONS (3)
  - Neutropenia [None]
  - Anaemia [None]
  - Leukopenia [None]

NARRATIVE: CASE EVENT DATE: 20140603
